FAERS Safety Report 4999417-6 (Version None)
Quarter: 2006Q2

REPORT INFORMATION
  Report Type: 
  Country: None (occurrence: None)
  Receive Date: 20060509
  Receipt Date: 20060501
  Transmission Date: 20061013
  Serious: Yes (Hospitalization)
  Sender: FDA-Public Use
  Company Number: 2006BI005145

PATIENT
  Age: 59 Year
  Sex: Female

DRUGS (1)
  1. AVONEX [Suspect]
     Indication: MULTIPLE SCLEROSIS
     Dosage: IM
     Route: 030

REACTIONS (5)
  - FALL [None]
  - IMPAIRED HEALING [None]
  - PLATELET COUNT INCREASED [None]
  - UPPER LIMB FRACTURE [None]
  - WRIST FRACTURE [None]
